FAERS Safety Report 13736289 (Version 1)
Quarter: 2017Q3

REPORT INFORMATION
  Report Type: Spontaneous
  Country: JP (occurrence: JP)
  Receive Date: 20170710
  Receipt Date: 20170710
  Transmission Date: 20171127
  Serious: Yes (Life-Threatening, Hospitalization)
  Sender: FDA-Public Use
  Company Number: JP-VIFOR (INTERNATIONAL) INC.-VIT-2017-07236

PATIENT
  Age: 68 Year
  Sex: Female

DRUGS (7)
  1. MIRCERA [Suspect]
     Active Substance: METHOXY POLYETHYLENE GLYCOL-EPOETIN BETA
     Indication: NEPHROGENIC ANAEMIA
     Route: 042
     Dates: start: 20170404, end: 20170502
  2. TAKEPRON [Concomitant]
     Active Substance: LANSOPRAZOLE
     Route: 048
  3. FOSRENOL [Concomitant]
     Active Substance: LANTHANUM CARBONATE
     Route: 065
     Dates: start: 20150425
  4. PLETAAL [Concomitant]
     Active Substance: CILOSTAZOL
     Route: 048
  5. REGPARA [Concomitant]
     Active Substance: CINACALCET HYDROCHLORIDE
     Route: 065
  6. ANPLAG [Concomitant]
     Active Substance: SARPOGRELATE
     Route: 065
  7. ROCALTROL [Concomitant]
     Active Substance: CALCITRIOL
     Route: 065

REACTIONS (11)
  - Stertor [Unknown]
  - Myocardial ischaemia [Unknown]
  - Peripheral coldness [Unknown]
  - Nausea [Unknown]
  - Altered state of consciousness [Unknown]
  - Yawning [Unknown]
  - Blood pressure decreased [Unknown]
  - Coronary artery stenosis [Unknown]
  - Drug hypersensitivity [Unknown]
  - Anaphylactic shock [Recovered/Resolved]
  - Respiratory failure [Unknown]

NARRATIVE: CASE EVENT DATE: 20170404
